FAERS Safety Report 23734177 (Version 1)
Quarter: 2024Q2

REPORT INFORMATION
  Report Type: Spontaneous
  Country: CN (occurrence: CN)
  Receive Date: 20240412
  Receipt Date: 20240412
  Transmission Date: 20240716
  Serious: Yes (Life-Threatening)
  Sender: FDA-Public Use
  Company Number: CN-91440300279544901A-J2024HPR000196

PATIENT
  Age: 91 Year
  Sex: Female

DRUGS (2)
  1. ENOXAPARIN SODIUM [Suspect]
     Active Substance: ENOXAPARIN SODIUM
     Indication: Bronchitis chronic
     Dosage: 4000IU,QD
     Dates: start: 20240208, end: 20240213
  2. PIPERACILLIN SODIUM [Suspect]
     Active Substance: PIPERACILLIN SODIUM
     Indication: Bronchitis chronic
     Dosage: 4G,BID
     Route: 041
     Dates: start: 20240203, end: 20240216

REACTIONS (2)
  - Coagulopathy [Unknown]
  - Platelet count decreased [Unknown]

NARRATIVE: CASE EVENT DATE: 20240214
